FAERS Safety Report 23687393 (Version 2)
Quarter: 2024Q2

REPORT INFORMATION
  Report Type: Report from Study
  Country: US (occurrence: US)
  Receive Date: 20240329
  Receipt Date: 20240401
  Transmission Date: 20240716
  Serious: Yes (Other)
  Sender: FDA-Public Use
  Company Number: US-ABBVIE-5694961

PATIENT
  Sex: Female

DRUGS (1)
  1. HUMIRA [Suspect]
     Active Substance: ADALIMUMAB
     Indication: Rheumatoid arthritis
     Route: 058
     Dates: start: 20180616

REACTIONS (4)
  - Malignant melanoma stage III [Unknown]
  - Lymphoma [Unknown]
  - Varicose vein [Unknown]
  - Precancerous cells present [Unknown]

NARRATIVE: CASE EVENT DATE: 20220101
